FAERS Safety Report 12279356 (Version 1)
Quarter: 2016Q2

REPORT INFORMATION
  Report Type: Spontaneous
  Country: US (occurrence: US)
  Receive Date: 20160418
  Receipt Date: 20160418
  Transmission Date: 20160815
  Serious: No
  Sender: FDA-Public Use
  Company Number: US-OTSUKA-2016_003975

PATIENT
  Sex: Female
  Weight: 89.35 kg

DRUGS (2)
  1. REXULTI [Suspect]
     Active Substance: BREXPIPRAZOLE
     Indication: SUBSTANCE ABUSE
     Dosage: 1 MG, UNK
     Route: 048
     Dates: start: 2015
  2. REXULTI [Suspect]
     Active Substance: BREXPIPRAZOLE
     Dosage: 2 MG, UNK
     Route: 048

REACTIONS (5)
  - Weight increased [Unknown]
  - Exercise lack of [Not Recovered/Not Resolved]
  - Off label use [Unknown]
  - Hyperphagia [Not Recovered/Not Resolved]
  - Fatigue [Recovered/Resolved]
